FAERS Safety Report 22257844 (Version 1)
Quarter: 2023Q2

REPORT INFORMATION
  Report Type: Spontaneous
  Country: CN (occurrence: CN)
  Receive Date: 20230427
  Receipt Date: 20230427
  Transmission Date: 20230722
  Serious: Yes (Hospitalization)
  Sender: FDA-Public Use
  Company Number: CN-002147023-NVSC2023CN093531

PATIENT
  Sex: Female

DRUGS (1)
  1. OXCARBAZEPINE [Suspect]
     Active Substance: OXCARBAZEPINE
     Indication: Epilepsy
     Dosage: 2 DOSAGE FORM, BID
     Route: 048
     Dates: start: 20230320, end: 20230401

REACTIONS (2)
  - Papule [Recovering/Resolving]
  - Erythema [Recovering/Resolving]
